FAERS Safety Report 12240832 (Version 1)
Quarter: 2016Q2

REPORT INFORMATION
  Report Type: Spontaneous
  Country: BR (occurrence: BR)
  Receive Date: 20160406
  Receipt Date: 20160406
  Transmission Date: 20160815
  Serious: Yes (Other)
  Sender: FDA-Public Use
  Company Number: BR-ACCORD-039420

PATIENT
  Age: 60 Year
  Sex: Female
  Weight: 100 kg

DRUGS (9)
  1. CARBOPLATIN. [Concomitant]
     Active Substance: CARBOPLATIN
     Indication: CHEMOTHERAPY
     Route: 042
     Dates: start: 20150713, end: 20150713
  2. ONDANSETRON [Concomitant]
     Active Substance: ONDANSETRON
     Indication: PREMEDICATION
     Dosage: ALSO RECEIVED 8 MG ORAL FROM 13-JUL-2015 TO 16-JUL-2015 AS ANTI-EMETIC
     Route: 042
     Dates: start: 20150713, end: 20150713
  3. METAMIZOLE SODIUM [Concomitant]
     Active Substance: METAMIZOLE SODIUM
     Indication: ANALGESIC THERAPY
     Route: 048
     Dates: start: 20150624
  4. PACLITAXEL/PACLITAXEL LIPOSOME [Suspect]
     Active Substance: PACLITAXEL
     Indication: UTERINE CANCER
     Route: 042
     Dates: start: 20150713, end: 20150713
  5. RANITIDINE. [Concomitant]
     Active Substance: RANITIDINE
     Indication: PREMEDICATION
     Route: 042
     Dates: start: 20150713, end: 20150713
  6. TRAMADOL. [Concomitant]
     Active Substance: TRAMADOL
     Indication: ANALGESIC THERAPY
     Route: 048
     Dates: start: 20150624, end: 20150724
  7. DEXAMETHASONE. [Concomitant]
     Active Substance: DEXAMETHASONE
     Indication: PREMEDICATION
     Dosage: ALSO RECEIVED 4 MG ORAL 12-JUL-2015 TO 15-JUL-2015 FOR PRE AND AFTER CHEMOTHERAPY
     Route: 042
     Dates: start: 20150713, end: 20150713
  8. DIPHENHYDRAMINE. [Concomitant]
     Active Substance: DIPHENHYDRAMINE
     Indication: PREMEDICATION
     Route: 042
     Dates: start: 20150713, end: 20150713
  9. BROMOPRIDE [Concomitant]
     Active Substance: BROMOPRIDE
     Indication: ANTIEMETIC SUPPORTIVE CARE
     Route: 048
     Dates: start: 20150624, end: 20150724

REACTIONS (5)
  - Paraesthesia [Recovered/Resolved]
  - Dyspnoea [Recovered/Resolved]
  - Off label use [Unknown]
  - Chest discomfort [Recovered/Resolved]
  - Erythema [Recovered/Resolved]

NARRATIVE: CASE EVENT DATE: 20150713
